FAERS Safety Report 23488671 (Version 6)
Quarter: 2024Q2

REPORT INFORMATION
  Report Type: Report from Study
  Country: CA (occurrence: CA)
  Receive Date: 20240206
  Receipt Date: 20240516
  Transmission Date: 20240716
  Serious: Yes (Other)
  Sender: FDA-Public Use
  Company Number: CA-HLS-202400246

PATIENT
  Sex: Female

DRUGS (11)
  1. CLOZARIL [Suspect]
     Active Substance: CLOZAPINE
     Indication: Schizoaffective disorder bipolar type
     Dosage: CLOZARIL 100 MG 3 TABLETS EVERY DAY AT BEDTIME
     Route: 048
     Dates: start: 20180220
  2. METAMUCIL [Concomitant]
     Active Substance: PLANTAGO SEED
     Indication: Constipation
     Dosage: 1 SCOOP 1 TIME DAILY FOR 90 DAYS TAKE 1 SCOOP IN THE MORNING.
     Route: 065
  3. LACTULAX [Concomitant]
     Indication: Constipation
     Dosage: 10GRAM/15 ML 30ML 1 TIME DAILY TAKE 30 ML ONCE
     Route: 065
  4. ATROPINE [Concomitant]
     Active Substance: ATROPINE\ATROPINE SULFATE
     Indication: Product used for unknown indication
     Dosage: 1% 1-2 DROPS EVERY 4 HOURS, PRN 1-2 DROPS
     Route: 065
  5. VITAMIN D [Concomitant]
     Active Substance: VITAMIN D NOS
     Indication: Product used for unknown indication
     Dosage: 1000 UNITS 1 TIME DAILY FOR 90 DAYS
     Route: 065
  6. GLUCOSAMINE [Concomitant]
     Active Substance: GLUCOSAMINE
     Indication: Product used for unknown indication
     Dosage: 500 MG 3 TIMES DAILY.
     Route: 065
  7. ABILIFY [Concomitant]
     Active Substance: ARIPIPRAZOLE
     Indication: Product used for unknown indication
     Dosage: 30 MG EVERY DAY AT BED
     Route: 065
  8. ASPIRIN [Concomitant]
     Active Substance: ASPIRIN
     Indication: Product used for unknown indication
     Dosage: 81 MG EVERY MORNING
     Route: 065
  9. CALCIUM [Concomitant]
     Active Substance: CALCIUM
     Indication: Product used for unknown indication
     Dosage: 500 MG EVERY EVENING
     Route: 065
  10. LEVOTHYROXINE [Concomitant]
     Active Substance: LEVOTHYROXINE\LEVOTHYROXINE SODIUM
     Indication: Product used for unknown indication
     Dosage: 150 MCG 1 TIME DAILY
     Route: 065
  11. LIPITOR [Concomitant]
     Active Substance: ATORVASTATIN CALCIUM
     Indication: Product used for unknown indication
     Dosage: 20MG EVERY DAY AT BED TIME
     Route: 065

REACTIONS (12)
  - Urine ketone body present [Unknown]
  - Neutropenia [Recovering/Resolving]
  - Back injury [Unknown]
  - Constipation [Unknown]
  - Hypothyroidism [Not Recovered/Not Resolved]
  - Monocyte count decreased [Not Recovered/Not Resolved]
  - Platelet count decreased [Unknown]
  - Off label use [Unknown]
  - Blood bilirubin increased [Unknown]
  - Upper respiratory tract infection [Recovering/Resolving]
  - White blood cells urine abnormal [Unknown]
  - White blood cell count decreased [Not Recovered/Not Resolved]

NARRATIVE: CASE EVENT DATE: 20210101
